FAERS Safety Report 6137249-6 (Version None)
Quarter: 2009Q1

REPORT INFORMATION
  Report Type: 
  Country: None (occurrence: None)
  Receive Date: 20090326
  Receipt Date: 20090326
  Transmission Date: 20090719
  Serious: Yes (Life-Threatening)
  Sender: FDA-Public Use
  Company Number: None

PATIENT
  Age: 13 Month
  Sex: Male
  Weight: 14.5 kg

DRUGS (7)
  1. CALFACTANT [Suspect]
     Indication: ACUTE RESPIRATORY DISTRESS SYNDROME
     Dosage: 30 MLS X1 ENDOTRACHEA
     Route: 007
     Dates: start: 20090116, end: 20090116
  2. CLINDAMYCIN HCL [Concomitant]
  3. CEFTRIAXONE [Concomitant]
  4. ALBUTEROL [Concomitant]
  5. FENTANYL-25 [Concomitant]
  6. PEPCID [Concomitant]
  7. MIDAZOLAM HCL [Concomitant]

REACTIONS (3)
  - CARDIAC ARREST [None]
  - CARDIOMYOPATHY [None]
  - HYPOTENSION [None]
